FAERS Safety Report 21229494 (Version 1)
Quarter: 2022Q3

REPORT INFORMATION
  Report Type: Spontaneous
  Country: US (occurrence: US)
  Receive Date: 20220818
  Receipt Date: 20220818
  Transmission Date: 20221027
  Serious: Yes (Death, Other)
  Sender: FDA-Public Use
  Company Number: US-FreseniusKabi-FK202211355

PATIENT
  Age: 64 Year
  Sex: Male

DRUGS (5)
  1. FUROSEMIDE [Suspect]
     Active Substance: FUROSEMIDE
     Indication: Hypervolaemia
     Route: 042
  2. CISPLATIN [Suspect]
     Active Substance: CISPLATIN
     Indication: Chemotherapy
     Dosage: (100 MG/M2) OVER 2 HOURS ON DAY 1
  3. DOXORUBICIN [Suspect]
     Active Substance: DOXORUBICIN
     Indication: Chemotherapy
     Dosage: (25 MG/M2) OVER 4 HOURS ON DAYS 1 THROUGH 3
  4. IFOSFAMIDE [Suspect]
     Active Substance: IFOSFAMIDE
     Indication: Chemotherapy
     Dosage: (1000 MG/M2) MONOTHERAPY, WITH THE PLAN TO GIVE DAILY ON DAYS 1 THROUGH 5.
     Route: 042
  5. OXYGEN [Concomitant]
     Active Substance: OXYGEN
     Indication: Supplementation therapy
     Dosage: HIGH-FLOW NASAL CANNULA (50 L, 60 PERCENT)

REACTIONS (1)
  - Tumour lysis syndrome [Fatal]
